FAERS Safety Report 18901440 (Version 1)
Quarter: 2021Q1

REPORT INFORMATION
  Report Type: Spontaneous
  Country: BG (occurrence: BG)
  Receive Date: 20210217
  Receipt Date: 20210217
  Transmission Date: 20210420
  Serious: Yes (Life-Threatening, Hospitalization, Other)
  Sender: FDA-Public Use
  Company Number: BG-JNJFOC-20210220246

PATIENT
  Age: 37 Year
  Sex: Male

DRUGS (4)
  1. HALDOL [Suspect]
     Active Substance: HALOPERIDOL
     Indication: SCHIZOPHRENIA
     Route: 065
  2. CHLORPROTHIXENE [Suspect]
     Active Substance: CHLORPROTHIXENE
     Indication: SCHIZOPHRENIA
     Route: 065
  3. MODITEN DEPO [FLUPHENAZINE DECANOATE] [Suspect]
     Active Substance: FLUPHENAZINE DECANOATE
     Indication: SCHIZOPHRENIA
     Route: 065
  4. VALPROIC ACID. [Concomitant]
     Active Substance: VALPROIC ACID
     Indication: SCHIZOPHRENIA

REACTIONS (8)
  - Subclavian artery thrombosis [Unknown]
  - Neuroleptic malignant syndrome [Unknown]
  - Vertebral artery thrombosis [Unknown]
  - Steal syndrome [Unknown]
  - Ischaemic stroke [Unknown]
  - Cerebral artery thrombosis [Unknown]
  - Hemiparesis [Unknown]
  - Vasculitis [Unknown]
